FAERS Safety Report 7024500-3 (Version None)
Quarter: 2010Q4

REPORT INFORMATION
  Report Type: 
  Country: None (occurrence: None)
  Receive Date: 20101001
  Receipt Date: 20100920
  Transmission Date: 20110411
  Serious: Yes (Hospitalization)
  Sender: FDA-Public Use
  Company Number: A0883354A

PATIENT
  Age: 12 Year
  Sex: Male
  Weight: 34.5 kg

DRUGS (6)
  1. NELARABINE [Suspect]
     Dosage: 650MGM2 CYCLIC
     Route: 042
  2. MERCAPTOPURINE [Suspect]
     Dosage: 75MGM2 CYCLIC
     Route: 048
  3. VINCRISTINE [Suspect]
     Dosage: 1.5MGM2 CYCLIC
     Route: 042
  4. DEXAMETHASONE [Suspect]
     Dosage: 3MGM2 TWICE PER DAY
     Route: 048
  5. METHOTREXATE [Suspect]
     Dosage: 20MGM2 CYCLIC
     Route: 048
  6. METHOTREXATE [Suspect]
     Route: 037

REACTIONS (6)
  - COUGH [None]
  - ILL-DEFINED DISORDER [None]
  - NEUTROPENIA [None]
  - PYREXIA [None]
  - SINUSITIS [None]
  - UPPER RESPIRATORY TRACT INFECTION [None]
